FAERS Safety Report 5154114-1 (Version None)
Quarter: 2006Q4

REPORT INFORMATION
  Report Type: 
  Country: None (occurrence: None)
  Receive Date: 20061120
  Receipt Date: 20061115
  Transmission Date: 20070319
  Serious: Yes (Hospitalization)
  Sender: FDA-Public Use
  Company Number: US-MERCK-0611USA04915

PATIENT
  Age: 80 Year
  Sex: Male

DRUGS (10)
  1. ZOCOR [Suspect]
     Indication: CORONARY ARTERY DISEASE
     Route: 048
     Dates: start: 20060901
  2. NORVASC [Concomitant]
     Route: 065
  3. ATENOLOL [Concomitant]
     Route: 065
  4. LASIX [Concomitant]
     Route: 065
  5. GEMFIBROZIL [Concomitant]
     Route: 065
  6. IMDUR [Concomitant]
     Route: 065
  7. LEVOTHYROXINE SODIUM [Concomitant]
     Route: 065
  8. BENAZEPRIL HCL [Concomitant]
     Route: 065
  9. POTASSIUM (UNSPECIFIED) [Concomitant]
     Route: 065
  10. COUMADIN [Concomitant]
     Route: 065

REACTIONS (5)
  - CARDIAC FAILURE CONGESTIVE [None]
  - CONDITION AGGRAVATED [None]
  - FLUID RETENTION [None]
  - INTERNATIONAL NORMALISED RATIO INCREASED [None]
  - WHITE BLOOD CELL COUNT INCREASED [None]
